FAERS Safety Report 9292233 (Version 2)
Quarter: 2014Q2

REPORT INFORMATION
  Report Type: Spontaneous
  Country: US (occurrence: US)
  Receive Date: 20130516
  Receipt Date: 20140404
  Transmission Date: 20141212
  Serious: No
  Sender: FDA-Public Use
  Company Number: US-PFIZER INC-2013150693

PATIENT
  Age: 48 Year
  Sex: Female
  Weight: 72.56 kg

DRUGS (3)
  1. LYRICA [Suspect]
     Indication: FIBROMYALGIA
     Dosage: 150 MG, 1X/DAY
     Route: 048
     Dates: start: 2006, end: 201304
  2. LYRICA [Suspect]
     Dosage: 150 MG, 1X/DAY
     Dates: start: 20140226
  3. FEMHRT [Concomitant]
     Indication: HORMONE LEVEL ABNORMAL
     Dosage: 0.5 MG, 1X/DAY

REACTIONS (1)
  - Pain [Unknown]
